FAERS Safety Report 7452776-7 (Version None)
Quarter: 2011Q2

REPORT INFORMATION
  Report Type: 
  Country: None (occurrence: None)
  Receive Date: 20110502
  Receipt Date: 20101109
  Transmission Date: 20111010
  Serious: No
  Sender: FDA-Public Use
  Company Number: US-ASTRAZENECA-2010SE53650

PATIENT
  Sex: Male

DRUGS (2)
  1. NEXIUM [Suspect]
     Indication: GASTROOESOPHAGEAL REFLUX DISEASE
     Route: 048
     Dates: start: 20100601
  2. NEXIUM [Suspect]
     Route: 048

REACTIONS (6)
  - CARBOHYDRATE METABOLISM DISORDER [None]
  - DIARRHOEA [None]
  - SKIN EXFOLIATION [None]
  - FATIGUE [None]
  - BLOOD GLUCOSE FLUCTUATION [None]
  - DYSPHONIA [None]
